FAERS Safety Report 7656487-4 (Version None)
Quarter: 2011Q3

REPORT INFORMATION
  Report Type: 
  Country: None (occurrence: None)
  Receive Date: 20110804
  Receipt Date: 20100804
  Transmission Date: 20111222
  Serious: No
  Sender: FDA-Public Use
  Company Number: US-BAUSCH-2010BL004270

PATIENT
  Age: 22 Year
  Sex: Female

DRUGS (2)
  1. MEPERIDINE HCL [Concomitant]
     Indication: HYPERSENSITIVITY
  2. OPCON-A [Suspect]
     Indication: EYE ALLERGY
     Route: 047
     Dates: start: 20100804, end: 20100804

REACTIONS (2)
  - MYDRIASIS [None]
  - EXPIRED DRUG ADMINISTERED [None]
